FAERS Safety Report 25119212 (Version 1)
Quarter: 2025Q1

REPORT INFORMATION
  Report Type: Spontaneous
  Country: US (occurrence: US)
  Receive Date: 20250325
  Receipt Date: 20250325
  Transmission Date: 20250408
  Serious: No
  Sender: BAYER HEALTHCARE PHARMACEUTICALS INC.
  Company Number: US-BAYER-2025A039621

PATIENT
  Sex: Female

DRUGS (1)
  1. JIVI [Suspect]
     Active Substance: DAMOCTOCOG ALFA PEGOL
     Indication: Prophylaxis
     Dates: start: 20250319

REACTIONS (1)
  - Inappropriate schedule of product administration [Unknown]
